FAERS Safety Report 4601509-8 (Version None)
Quarter: 2005Q1

REPORT INFORMATION
  Report Type: 
  Country: None (occurrence: None)
  Receive Date: 20050308
  Receipt Date: 20041129
  Transmission Date: 20050727
  Serious: Yes (Life-Threatening, Disabling)
  Sender: FDA-Public Use
  Company Number: US-MERCK-0411USA04133

PATIENT
  Age: 43 Year
  Sex: Male

DRUGS (3)
  1. VIOXX [Suspect]
     Indication: PAIN
     Route: 048
     Dates: start: 20030701, end: 20040901
  2. VIOXX [Suspect]
     Indication: ARTHRITIS
     Route: 048
     Dates: start: 20030701, end: 20040901
  3. CELEBREX [Concomitant]
     Route: 065

REACTIONS (5)
  - CHEST PAIN [None]
  - INTERVERTEBRAL DISC DEGENERATION [None]
  - NECK INJURY [None]
  - NODULE [None]
  - ROAD TRAFFIC ACCIDENT [None]
